FAERS Safety Report 23042695 (Version 1)
Quarter: 2023Q4

REPORT INFORMATION
  Report Type: Spontaneous
  Country: US (occurrence: US)
  Receive Date: 20231009
  Receipt Date: 20231009
  Transmission Date: 20240110
  Serious: No
  Sender: FDA-Public Use
  Company Number: US-SA-SAC20231003001112

PATIENT

DRUGS (3)
  1. DUPIXENT [Suspect]
     Active Substance: DUPILUMAB
     Indication: Dermatitis atopic
     Dosage: UNK
     Route: 065
  2. EUCRISA [Concomitant]
     Active Substance: CRISABOROLE
  3. CIBINQO [Concomitant]
     Active Substance: ABROCITINIB

REACTIONS (1)
  - Treatment failure [Unknown]
